FAERS Safety Report 23457563 (Version 1)
Quarter: 2024Q1

REPORT INFORMATION
  Report Type: Spontaneous
  Country: DK (occurrence: DK)
  Receive Date: 20240130
  Receipt Date: 20240130
  Transmission Date: 20240410
  Serious: Yes (Hospitalization, Other)
  Sender: FDA-Public Use
  Company Number: DK-ORIFARM GENERICS A/S-2024DK000042

PATIENT
  Age: 14 Year
  Sex: Male
  Weight: 50 kg

DRUGS (1)
  1. ACETAMINOPHEN [Suspect]
     Active Substance: ACETAMINOPHEN
     Indication: Product used for unknown indication
     Dosage: 1000 MILLIGRAM, QD (4 DOSAGE FORM, 1000 MGX4)
     Route: 065

REACTIONS (4)
  - Toxicity to various agents [Unknown]
  - Drug-induced liver injury [Recovering/Resolving]
  - Prescribed overdose [Unknown]
  - Medication error [Unknown]
